FAERS Safety Report 8545541 (Version 2)
Quarter: 2013Q1

REPORT INFORMATION
  Report Type: Spontaneous
  Country: US (occurrence: US)
  Receive Date: 20120503
  Receipt Date: 20130325
  Transmission Date: 20140127
  Serious: Yes (Other)
  Sender: FDA-Public Use
  Company Number: US-PFIZER INC-2012105890

PATIENT
  Age: 44 Year
  Sex: Female
  Weight: 81.63 kg

DRUGS (11)
  1. LYRICA [Suspect]
     Indication: FIBROMYALGIA
     Dosage: 75 MG, 2X/DAY
     Route: 048
  2. LYRICA [Suspect]
     Dosage: 75MG TWO TIMES A DAY DURING DAY TIME AND 150MG AT BED TIME
     Route: 048
     Dates: start: 201109
  3. CELEXA [Concomitant]
     Dosage: UNK
  4. HYDROCHLOROTHIAZIDE [Concomitant]
     Indication: HYPERTENSION
     Dosage: UNK
  5. XANAX [Concomitant]
     Dosage: UNK
  6. AMBIEN [Concomitant]
     Dosage: UNK
  7. ESTRADIOL [Concomitant]
     Dosage: UNK
  8. FLEXERIL [Concomitant]
     Dosage: UNK, AS NEEDED
  9. LASIX [Concomitant]
     Dosage: UNK
  10. TRAMADOL [Concomitant]
     Dosage: UNK
  11. POTASSIUM [Concomitant]
     Dosage: UNK

REACTIONS (7)
  - Activities of daily living impaired [Unknown]
  - Fibromyalgia [Unknown]
  - Weight increased [Unknown]
  - Paraesthesia [Unknown]
  - Hypoaesthesia [Unknown]
  - Increased appetite [Unknown]
  - Food craving [Unknown]
